FAERS Safety Report 16541034 (Version 2)
Quarter: 2019Q3

REPORT INFORMATION
  Report Type: Spontaneous
  Country: US (occurrence: US)
  Receive Date: 20190708
  Receipt Date: 20190731
  Transmission Date: 20191004
  Serious: No
  Sender: FDA-Public Use
  Company Number: US-ELI_LILLY_AND_COMPANY-US201906010131

PATIENT
  Sex: Male

DRUGS (1)
  1. TALTZ [Suspect]
     Active Substance: IXEKIZUMAB
     Indication: PRODUCT USED FOR UNKNOWN INDICATION
     Dosage: 80 MG, EVERY 2 WEEKS
     Route: 065

REACTIONS (5)
  - Injection site erythema [Unknown]
  - Photosensitivity reaction [Unknown]
  - Pain [Unknown]
  - Blister [Unknown]
  - Skin induration [Unknown]
